FAERS Safety Report 5418020-7 (Version None)
Quarter: 2007Q3

REPORT INFORMATION
  Report Type: 
  Country: None (occurrence: None)
  Receive Date: 20070817
  Receipt Date: 20060926
  Transmission Date: 20080115
  Serious: No
  Sender: FDA-Public Use
  Company Number: A0621466A

PATIENT
  Age: 53 Year
  Sex: Male

DRUGS (1)
  1. BEXXAR [Suspect]
     Indication: NON-HODGKIN'S LYMPHOMA
     Dates: start: 19980101

REACTIONS (1)
  - THERAPEUTIC RESPONSE DECREASED [None]
